FAERS Safety Report 20196310 (Version 2)
Quarter: 2021Q4

REPORT INFORMATION
  Report Type: Spontaneous
  Country: TR (occurrence: TR)
  Receive Date: 20211216
  Receipt Date: 20211229
  Transmission Date: 20220303
  Serious: Yes (Hospitalization)
  Sender: FDA-Public Use
  Company Number: TR-TEVA-2021-TR-1986830

PATIENT
  Age: 56 Year
  Sex: Male

DRUGS (6)
  1. PALIPERIDONE [Suspect]
     Active Substance: PALIPERIDONE
     Indication: Substance-induced psychotic disorder
     Dosage: 3MG
     Route: 048
  2. PREGABALIN [Suspect]
     Active Substance: PREGABALIN
     Indication: Drug abuse
     Route: 065
  3. METHAMPHETAMINE [Suspect]
     Active Substance: METHAMPHETAMINE
     Indication: Drug abuse
     Route: 065
  4. OLANZAPINE [Suspect]
     Active Substance: OLANZAPINE
     Indication: Substance-induced psychotic disorder
     Dosage: 10MG
     Route: 048
  5. OLANZAPINE [Suspect]
     Active Substance: OLANZAPINE
     Dosage: 10MG
     Route: 030
  6. PALIPERIDONE PALMITATE [Suspect]
     Active Substance: PALIPERIDONE PALMITATE
     Indication: Substance-induced psychotic disorder
     Dosage: 100MG
     Route: 030

REACTIONS (8)
  - Substance-induced psychotic disorder [Recovered/Resolved]
  - Delirium [Recovered/Resolved]
  - Cognitive disorder [Recovered/Resolved]
  - Disorientation [Recovered/Resolved]
  - Amnesia [Recovered/Resolved]
  - Anosognosia [Recovered/Resolved]
  - Drug abuse [Unknown]
  - Drug ineffective [Unknown]
